FAERS Safety Report 5337299-3 (Version None)
Quarter: 2007Q2

REPORT INFORMATION
  Report Type: 
  Country: None (occurrence: None)
  Receive Date: 20070315
  Receipt Date: 20061009
  Transmission Date: 20071010
  Serious: Yes (Hospitalization)
  Sender: FDA-Public Use
  Company Number: PHEH2006US12710

PATIENT
  Age: 79 Year
  Sex: Female
  Weight: 72.6 kg

DRUGS (3)
  1. TRILEPTAL [Suspect]
     Indication: PARTIAL SEIZURES
     Dosage: 600 MG, BID, ORAL
     Route: 048
  2. DEPAKOTE [Concomitant]
     Indication: PARTIAL SEIZURES
     Dosage: 600 MG, BID, ORAL
     Route: 048
  3. DEPAKOTE [Concomitant]

REACTIONS (4)
  - BEDRIDDEN [None]
  - CONFUSIONAL STATE [None]
  - DECREASED ACTIVITY [None]
  - HYPONATRAEMIA [None]
